FAERS Safety Report 18241216 (Version 1)
Quarter: 2020Q3

REPORT INFORMATION
  Report Type: Spontaneous
  Country: US (occurrence: US)
  Receive Date: 20200905
  Receipt Date: 20200905
  Transmission Date: 20201103
  Serious: Yes (Life-Threatening)
  Sender: FDA-Public Use
  Company Number: None

PATIENT
  Age: 41 Year
  Sex: Female
  Weight: 60.75 kg

DRUGS (6)
  1. NALTREXONE [Suspect]
     Active Substance: NALTREXONE
     Indication: PAIN
     Dosage: ?          QUANTITY:1 TABLET(S);OTHER FREQUENCY:ONCE/3DAYS;?
     Route: 048
     Dates: start: 20200820, end: 20200820
  2. TURMERIC [Concomitant]
     Active Substance: HERBALS\TURMERIC
  3. VITAMIN B6 [Concomitant]
     Active Substance: PYRIDOXINE HYDROCHLORIDE
  4. ATIVAN [Concomitant]
     Active Substance: LORAZEPAM
  5. KRATOM [Suspect]
     Active Substance: HERBALS\MITRAGYNINE
  6. MULTI?VITAMIN [Concomitant]
     Active Substance: .ALPHA.-TOCOPHEROL ACETATE, DL-\ASCORBIC ACID\CYANOCOBALAMIN\FLUORIDE ION\FOLIC ACID\NIACIN\PYRIDOXINE\RIBOFLAVIN\THIAMINE\VITAMIN A\VITAMIN D

REACTIONS (11)
  - Nausea [None]
  - Mental impairment [None]
  - Muscle spasms [None]
  - Drug withdrawal syndrome [None]
  - Hyperhidrosis [None]
  - Chills [None]
  - Restlessness [None]
  - Rhinorrhoea [None]
  - Abdominal pain upper [None]
  - Dyspnoea [None]
  - Drug interaction [None]

NARRATIVE: CASE EVENT DATE: 20200820
